FAERS Safety Report 10161644 (Version 2)
Quarter: 2014Q4

REPORT INFORMATION
  Report Type: Spontaneous
  Country: US (occurrence: US)
  Receive Date: 20140509
  Receipt Date: 20141205
  Transmission Date: 20150528
  Serious: Yes (Hospitalization, Other)
  Sender: FDA-Public Use
  Company Number: US-BRISTOL-MYERS SQUIBB COMPANY-20695300

PATIENT
  Age: 66 Year
  Sex: Female
  Weight: 64.85 kg

DRUGS (5)
  1. LISINOPRIL. [Concomitant]
     Active Substance: LISINOPRIL
     Indication: HYPERTENSION
  2. COUMADIN [Suspect]
     Active Substance: WARFARIN SODIUM
     Dates: end: 2013
  3. LEVOTHYROXINE [Suspect]
     Active Substance: LEVOTHYROXINE
     Indication: HYPOTHYROIDISM
     Dosage: DOSE INCRSD TO 112MCG
     Dates: start: 2013, end: 2013
  4. METOPROLOL [Concomitant]
     Active Substance: METOPROLOL
     Indication: HYPERTENSION
  5. SYNTHROID [Suspect]
     Active Substance: LEVOTHYROXINE SODIUM
     Indication: HYPOTHYROIDISM
     Dosage: 88MCG STPD 0N 2013 RESTD WITH 100MCG ON 11APR2014 (DOSE NOT CHANGED)
     Dates: start: 2003

REACTIONS (10)
  - Femur fracture [Recovered/Resolved]
  - Blood pressure fluctuation [Unknown]
  - Coronary artery occlusion [Recovered/Resolved]
  - Haemorrhage [Recovered/Resolved]
  - Fall [Recovered/Resolved]
  - Nausea [Recovered/Resolved]
  - Incorrect dose administered [Unknown]
  - Headache [Unknown]
  - Rotator cuff syndrome [Recovered/Resolved]
  - Heart rate increased [Unknown]

NARRATIVE: CASE EVENT DATE: 2010
